FAERS Safety Report 8226707-6 (Version None)
Quarter: 2012Q1

REPORT INFORMATION
  Report Type: 
  Country: None (occurrence: None)
  Receive Date: 20120322
  Receipt Date: 20120316
  Transmission Date: 20120608
  Serious: Yes (Other)
  Sender: FDA-Public Use
  Company Number: US-BAYER-2011-109333

PATIENT
  Age: 38 Year
  Sex: Female
  Weight: 66 kg

DRUGS (9)
  1. AMOXICILLIN [Concomitant]
     Dosage: UNK
     Route: 048
     Dates: start: 20091201
  2. YAZ [Suspect]
     Indication: CONTRACEPTION
     Dosage: UNK
     Route: 048
     Dates: start: 20090901, end: 20100101
  3. YAZ [Suspect]
     Indication: ACNE
  4. YAZ [Suspect]
     Indication: WEIGHT FLUCTUATION
  5. PROVENTIL [Concomitant]
     Dosage: UNK
     Route: 055
     Dates: start: 20091215
  6. CHERATUSSIN AC [Concomitant]
     Dosage: UNK
     Route: 048
     Dates: start: 20091215
  7. YAZ [Suspect]
     Indication: OVARIAN CYST
  8. YAZ [Suspect]
     Indication: HORMONE LEVEL ABNORMAL
  9. ZYRTEC [Concomitant]
     Indication: HYPERSENSITIVITY
     Dosage: UNK UNK, PRN, DAILY
     Route: 048

REACTIONS (3)
  - DEEP VEIN THROMBOSIS [None]
  - THROMBOPHLEBITIS [None]
  - PAIN [None]
